FAERS Safety Report 10981361 (Version 1)
Quarter: 2015Q1

REPORT INFORMATION
  Report Type: Spontaneous
  Country: US (occurrence: None)
  Receive Date: 20150227
  Receipt Date: 20150227
  Transmission Date: 20150721
  Serious: Yes (Other)
  Sender: FDA-Public Use
  Company Number: LMI-2014-00391

PATIENT
  Age: 61 Year
  Sex: Male

DRUGS (11)
  1. DILTIAZEM [Concomitant]
     Active Substance: DILTIAZEM
  2. DEFINITY [Suspect]
     Active Substance: PERFLUTREN
     Indication: STRESS ECHOCARDIOGRAM
     Dosage: 5 ML (1.3 ML DEFINITY DILUTED IN 8.7 ML NOMRAL SALINE)
     Dates: start: 20140828, end: 20140828
  3. STEROIDS (CORTICOSTEROIDS) [Concomitant]
     Active Substance: UNSPECIFIED INGREDIENT
  4. ASPIRIN (ACETYLSALICYLIC ACID) [Concomitant]
     Active Substance: ASPIRIN
  5. OMEPRAZOLE (OMEPRAZOLE) [Concomitant]
     Active Substance: OMEPRAZOLE
  6. ZOLOFT [Concomitant]
     Active Substance: SERTRALINE HYDROCHLORIDE
  7. DESYREL [Concomitant]
     Active Substance: TRAZODONE HYDROCHLORIDE
  8. FLONASE [Concomitant]
     Active Substance: FLUTICASONE PROPIONATE
  9. FORADIL (FORMOTEROL FUMARATE) [Concomitant]
  10. SINGULAIR (MONTELUKAST SODIUM) [Concomitant]
  11. ALBUTEROL. [Concomitant]
     Active Substance: ALBUTEROL

REACTIONS (2)
  - Anaphylactic reaction [None]
  - Syncope [None]

NARRATIVE: CASE EVENT DATE: 20140828
